FAERS Safety Report 15111782 (Version 1)
Quarter: 2018Q3

REPORT INFORMATION
  Report Type: Spontaneous
  Country: CZ (occurrence: CZ)
  Receive Date: 20180705
  Receipt Date: 20180705
  Transmission Date: 20181010
  Serious: Yes (Hospitalization)
  Sender: FDA-Public Use
  Company Number: CZ-B. BRAUN MEDICAL INC.-2051473

PATIENT
  Sex: Female

DRUGS (6)
  1. METRONIDAZOLE INJECTION USP (5 MG/ML) IN PAB? PLASTIC CONTAINER [Suspect]
     Active Substance: METRONIDAZOLE
     Indication: SKIN ULCER
  2. GENTAMICIN. [Suspect]
     Active Substance: GENTAMICIN
  3. MYCOMAX [FLUCONAZOLE] [Concomitant]
     Active Substance: FLUCONAZOLE
  4. ZINFORO [CEFTAROLINE FOSAMIL] [Suspect]
     Active Substance: CEFTAROLINE FOSAMIL
  5. METRONIDAZOLE INJECTION USP (5 MG/ML) IN PAB? PLASTIC CONTAINER [Suspect]
     Active Substance: METRONIDAZOLE
     Indication: PNEUMONIA
  6. METRONIDAZOLE INJECTION USP (5 MG/ML) IN PAB? PLASTIC CONTAINER [Suspect]
     Active Substance: METRONIDAZOLE
     Indication: ABSCESS

REACTIONS (2)
  - Drug ineffective [Unknown]
  - Inflammatory marker increased [Recovered/Resolved]
